FAERS Safety Report 18645414 (Version 2)
Quarter: 2021Q1

REPORT INFORMATION
  Report Type: Spontaneous
  Country: CA (occurrence: CA)
  Receive Date: 20201221
  Receipt Date: 20210112
  Transmission Date: 20210419
  Serious: Yes (Other)
  Sender: FDA-Public Use
  Company Number: CA-BAYER-2020-282107

PATIENT
  Age: 44 Year
  Sex: Male

DRUGS (24)
  1. DIPHENHYDRAMINE HYDROCHLORIDE. [Concomitant]
     Active Substance: DIPHENHYDRAMINE HYDROCHLORIDE
     Indication: SKIN TEST
     Route: 065
  2. BENZOPHENONE [Concomitant]
     Active Substance: BENZOPHENONE
     Indication: SKIN TEST
     Route: 065
  3. SANDOZ PROCTOMYXIN HC [Concomitant]
     Indication: SKIN TEST
     Route: 065
  4. ETHYLENEDIAMINE DIHYDROCHLORIDE [Concomitant]
     Active Substance: ETHYLENEDIAMINE DIHYDROCHLORIDE
     Indication: SKIN TEST
     Route: 065
  5. GRAMICIDIN [Concomitant]
     Active Substance: GRAMICIDIN
     Indication: SKIN TEST
     Route: 065
  6. BACITRACIN. [Concomitant]
     Active Substance: BACITRACIN
     Indication: SKIN TEST
     Route: 065
  7. BUDESONIDE. [Concomitant]
     Active Substance: BUDESONIDE
     Indication: SKIN TEST
     Route: 065
  8. KANAMYCIN SULFATE [Concomitant]
     Active Substance: KANAMYCIN SULFATE
     Indication: SKIN TEST
     Route: 065
  9. CLARITIN [Suspect]
     Active Substance: LORATADINE
     Indication: PRURITUS
     Route: 065
  10. CHLORHEXIDINE GLUCONATE. [Concomitant]
     Active Substance: CHLORHEXIDINE GLUCONATE
     Indication: SKIN TEST
     Route: 065
  11. DIBUCAINE HYDROCHLORIDE [Concomitant]
     Active Substance: DIBUCAINE HYDROCHLORIDE
     Indication: SKIN TEST
     Route: 065
  12. FRAMYCETIN SULFATE [Concomitant]
     Active Substance: FRAMYCETIN SULFATE
     Indication: SKIN TEST
     Route: 065
  13. GUANIDINE [Concomitant]
     Active Substance: GUANIDINE
     Indication: SKIN TEST
     Route: 065
  14. HYDROCORTISONE. [Concomitant]
     Active Substance: HYDROCORTISONE
     Indication: SKIN TEST
     Route: 065
  15. TRIAMCINOLONE ACETONIDE. [Concomitant]
     Active Substance: TRIAMCINOLONE ACETONIDE
     Indication: SKIN TEST
     Route: 065
  16. ALCLOMETASONE DIPROPIONATE. [Concomitant]
     Active Substance: ALCLOMETASONE DIPROPIONATE
     Indication: SKIN TEST
     Route: 065
  17. CEFTRIAXONE SODIUM. [Concomitant]
     Active Substance: CEFTRIAXONE SODIUM
     Indication: SKIN TEST
     Route: 065
  18. NEOMYCIN SULFATE. [Concomitant]
     Active Substance: NEOMYCIN SULFATE
     Indication: SKIN TEST
     Route: 065
  19. REACTINE [CETIRIZINE HYDROCHLORIDE] [Suspect]
     Active Substance: CETIRIZINE HYDROCHLORIDE
     Indication: PRURITUS
     Route: 065
  20. TIXOCORTOL PIVALATE [Concomitant]
     Active Substance: TIXOCORTOL PIVALATE
     Indication: SKIN TEST
     Route: 065
  21. GENTAMICIN SULFATE. [Concomitant]
     Active Substance: GENTAMICIN SULFATE
     Indication: SKIN TEST
     Route: 065
  22. LANOLIN. [Concomitant]
     Active Substance: LANOLIN
     Indication: SKIN TEST
     Route: 065
  23. PROCTOSEDYL [Suspect]
     Active Substance: DIBUCAINE HYDROCHLORIDE\HYDROCORTISONE
     Indication: HAEMORRHOIDS
     Route: 065
  24. THIRAM [Concomitant]
     Indication: SKIN TEST
     Route: 065

REACTIONS (2)
  - Dermatitis contact [Unknown]
  - Therapeutic product cross-reactivity [Unknown]
